FAERS Safety Report 5513981-X (Version None)
Quarter: 2007Q4

REPORT INFORMATION
  Report Type: 
  Country: None (occurrence: None)
  Receive Date: 20071106
  Receipt Date: 20070402
  Transmission Date: 20080405
  Serious: Yes (Other)
  Sender: FDA-Public Use
  Company Number: US-JNJFOC-20070402365

PATIENT
  Age: 65 Year
  Sex: Female
  Weight: 72.5755 kg

DRUGS (3)
  1. IBUPROFEN [Suspect]
     Indication: DRUG USE FOR UNKNOWN INDICATION
     Dosage: , 1 IN 1 TOTAL, ORAL
     Route: 048
     Dates: start: 20070206, end: 20070206
  2. IBUPROFEN [Suspect]
     Indication: DRUG USE FOR UNKNOWN INDICATION
     Dosage: , 1 IN 1 TOTAL, ORAL
     Route: 048
     Dates: start: 20070217
  3. SYNTHROID [Concomitant]

REACTIONS (1)
  - HYPERSENSITIVITY [None]
